FAERS Safety Report 18215878 (Version 1)
Quarter: 2020Q3

REPORT INFORMATION
  Report Type: Spontaneous
  Country: US (occurrence: US)
  Receive Date: 20200831
  Receipt Date: 20200831
  Transmission Date: 20201103
  Serious: No
  Sender: FDA-Public Use
  Company Number: US-WELLSTAT THERAPEUTICS CORPORATION-2089268

PATIENT
  Age: 13 Year
  Sex: Male
  Weight: 26.6 kg

DRUGS (5)
  1. VENTOLIN HFA [Concomitant]
     Active Substance: ALBUTEROL SULFATE
  2. XURIDEN [Suspect]
     Active Substance: URIDINE TRIACETATE
     Indication: CYTOGENETIC ABNORMALITY
     Route: 048
     Dates: start: 20200211, end: 20200508
  3. POLYETHYLENE GLYCOL (POLYETHYLENE GLYCOL 3350) [Concomitant]
     Active Substance: POLYETHYLENE GLYCOL 3350
  4. NEXIUM [Concomitant]
     Active Substance: ESOMEPRAZOLE MAGNESIUM
  5. PEDIASURE [Concomitant]
     Active Substance: VITAMINS

REACTIONS (2)
  - Off label use [Recovered/Resolved]
  - Abdominal discomfort [Recovered/Resolved]

NARRATIVE: CASE EVENT DATE: 20200211
